FAERS Safety Report 6424495-7 (Version None)
Quarter: 2009Q4

REPORT INFORMATION
  Report Type: 
  Country: None (occurrence: None)
  Receive Date: 20091103
  Receipt Date: 20091022
  Transmission Date: 20100525
  Serious: Yes (Other)
  Sender: FDA-Public Use
  Company Number: JP-ROCHE-663603

PATIENT
  Age: 7 Year
  Sex: Male

DRUGS (1)
  1. TAMIFLU [Suspect]
     Indication: INFLUENZA
     Dosage: DRUG REPORTED AS TAMIFLU DRY SYRUP 3%.
     Route: 048
     Dates: start: 20091011, end: 20091011

REACTIONS (1)
  - ABNORMAL BEHAVIOUR [None]
